FAERS Safety Report 8776983 (Version 3)
Quarter: 2012Q4

REPORT INFORMATION
  Report Type: 
  Country: US (occurrence: US)
  Receive Date: 20120911
  Receipt Date: 20121212
  Transmission Date: 20130627
  Serious: Yes (Hospitalization, Disabling)
  Sender: FDA-Public Use
  Company Number: US-BAYER-2012-093730

PATIENT
  Age: 19 Year
  Sex: Female
  Weight: 118 kg

DRUGS (5)
  1. YAZ [Suspect]
     Indication: MENSTRUAL CYCLE ABNORMAL
     Dosage: UNK
     Dates: start: 20080825, end: 20120228
  2. YAZ [Suspect]
     Indication: CONTRACEPTION
  3. NAPROXEN [Concomitant]
     Dosage: 500 mg, UNK
     Route: 048
     Dates: start: 20120215
  4. TRAMADOL [Concomitant]
     Dosage: 50 mg, UNK
     Route: 048
     Dates: start: 20120215
  5. SYNTHETIC ESTROGENS, PLAIN [Concomitant]

REACTIONS (7)
  - Pulmonary embolism [None]
  - Deep vein thrombosis [None]
  - Injury [None]
  - Pain [None]
  - Deformity [None]
  - Anxiety [None]
  - Quality of life decreased [None]
